FAERS Safety Report 8303516-0 (Version None)
Quarter: 2012Q2

REPORT INFORMATION
  Report Type: 
  Country: None (occurrence: None)
  Receive Date: 20120418
  Receipt Date: 20110119
  Transmission Date: 20120825
  Serious: Yes (Hospitalization)
  Sender: FDA-Public Use
  Company Number: AEDEU201100013

PATIENT
  Age: 51 Year
  Sex: Male

DRUGS (3)
  1. PROLASTIN [Suspect]
     Indication: ALPHA-1 ANTI-TRYPSIN DEFICIENCY
     Dosage: 0.5 GM;1X;IV
     Route: 042
     Dates: start: 20110112, end: 20110112
  2. ALBUTEROL [Concomitant]
  3. SYMBICORT [Concomitant]

REACTIONS (2)
  - BLOOD PRESSURE SYSTOLIC INCREASED [None]
  - DRUG HYPERSENSITIVITY [None]
